FAERS Safety Report 24790979 (Version 2)
Quarter: 2025Q3

REPORT INFORMATION
  Report Type: Spontaneous
  Country: EU (occurrence: EU)
  Receive Date: 20241230
  Receipt Date: 20250803
  Transmission Date: 20251020
  Serious: Yes (Other)
  Sender: ALEXION PHARMACEUTICALS
  Company Number: EU-SA-2024SA362138

PATIENT
  Age: 5 Month
  Sex: Female
  Weight: 8 kg

DRUGS (1)
  1. NIRSEVIMAB [Suspect]
     Active Substance: NIRSEVIMAB
     Route: 065
     Dates: start: 20240905, end: 20240905

REACTIONS (2)
  - Respiratory syncytial virus test positive [Unknown]
  - Respiratory syncytial virus bronchiolitis [Unknown]

NARRATIVE: CASE EVENT DATE: 20241204
